FAERS Safety Report 21390460 (Version 1)
Quarter: 2022Q3

REPORT INFORMATION
  Report Type: Spontaneous
  Country: CH (occurrence: CH)
  Receive Date: 20220929
  Receipt Date: 20220929
  Transmission Date: 20221027
  Serious: Yes (Hospitalization)
  Sender: FDA-Public Use
  Company Number: None

PATIENT
  Age: 18 Year
  Sex: Female

DRUGS (13)
  1. TRAMADOL HYDROCHLORIDE [Suspect]
     Active Substance: TRAMADOL HYDROCHLORIDE
     Indication: Pain
     Dosage: 100 MILLIGRAM, 4/DAY
     Route: 065
  2. ESOMEPRAZOLE [Suspect]
     Active Substance: ESOMEPRAZOLE
     Indication: Arthralgia
     Dosage: 40 MILLIGRAM, 1/DAY
     Route: 048
  3. BENLYSTA [Suspect]
     Active Substance: BELIMUMAB
     Indication: Arthralgia
     Dosage: 760 MILLIGRAM, 4/WEEK
     Route: 042
     Dates: start: 20220404, end: 20220811
  4. MYFORTIC [Suspect]
     Active Substance: MYCOPHENOLATE SODIUM
     Indication: Arthralgia
     Dosage: 1080 MILLIGRAM, EVERY 12 HRS
     Route: 048
     Dates: end: 20220827
  5. MYFORTIC [Suspect]
     Active Substance: MYCOPHENOLATE SODIUM
     Dosage: 720 MILLIGRAM, EVERY 12 HRS
     Route: 048
     Dates: start: 20220828
  6. PREDNISONE [Suspect]
     Active Substance: PREDNISONE
     Indication: Arthralgia
     Dosage: 20 MILLIGRAM, 1/DAY
     Route: 048
     Dates: end: 20220826
  7. PREDNISONE [Suspect]
     Active Substance: PREDNISONE
     Dosage: 30 MILLIGRAM, 1/DAY
     Route: 048
     Dates: start: 20220827
  8. LISINOPRIL [Suspect]
     Active Substance: LISINOPRIL
     Indication: Arthralgia
     Dosage: 5 MILLIGRAM, 1/DAY
     Route: 048
  9. BACTRIM [Suspect]
     Active Substance: SULFAMETHOXAZOLE\TRIMETHOPRIM
     Indication: Arthralgia
     Dosage: 160 MILLIGRAM, 3/WEEK
     Route: 048
  10. PLAQUENIL [Concomitant]
     Active Substance: HYDROXYCHLOROQUINE SULFATE
     Indication: Product used for unknown indication
     Dosage: 400 MILLIGRAM, 1/DAY
     Route: 048
     Dates: end: 20220827
  11. PLAQUENIL [Concomitant]
     Active Substance: HYDROXYCHLOROQUINE SULFATE
     Dosage: 200 MILLIGRAM, 1/DAY
     Route: 048
     Dates: start: 20220828
  12. BUTYLSCOPOLAMINE BROMIDE [Concomitant]
     Active Substance: BUTYLSCOPOLAMINE BROMIDE
     Indication: Product used for unknown indication
     Dosage: 10 MILLIGRAM, EVERY 8 HRS
     Route: 048
  13. CALCIUM\CHOLECALCIFEROL [Concomitant]
     Active Substance: CALCIUM\CHOLECALCIFEROL
     Indication: Product used for unknown indication
     Dosage: 1 DOSAGE FORM, 1/DAY
     Route: 048

REACTIONS (2)
  - Arthralgia [Not Recovered/Not Resolved]
  - Drug ineffective [Unknown]

NARRATIVE: CASE EVENT DATE: 20220825
